FAERS Safety Report 22258964 (Version 2)
Quarter: 2023Q2

REPORT INFORMATION
  Report Type: Report from Study
  Country: US (occurrence: US)
  Receive Date: 20230427
  Receipt Date: 20230504
  Transmission Date: 20230722
  Serious: Yes (Death)
  Sender: FDA-Public Use
  Company Number: US-MYLANLABS-2023M1042990

PATIENT
  Age: 48 Year
  Sex: Male

DRUGS (6)
  1. ALPRAZOLAM [Suspect]
     Active Substance: ALPRAZOLAM
     Dosage: UNK
  2. HYDROMORPHONE HYDROCHLORIDE [Suspect]
     Active Substance: HYDROMORPHONE HYDROCHLORIDE
     Dosage: UNK
  3. LEVETIRACETAM [Suspect]
     Active Substance: LEVETIRACETAM
  4. NALOXONE HCL [Suspect]
     Active Substance: NALOXONE HYDROCHLORIDE
  5. CAFFEINE [Suspect]
     Active Substance: CAFFEINE
     Dosage: UNK
  6. CYCLOBENZAPRINE [Suspect]
     Active Substance: CYCLOBENZAPRINE

REACTIONS (1)
  - Toxicity to various agents [Fatal]
